FAERS Safety Report 18816850 (Version 2)
Quarter: 2021Q1

REPORT INFORMATION
  Report Type: Spontaneous
  Country: US (occurrence: US)
  Receive Date: 20210201
  Receipt Date: 20210325
  Transmission Date: 20210419
  Serious: No
  Sender: FDA-Public Use
  Company Number: US-BIOVITRUM-2020US6609

PATIENT
  Age: 1 Year
  Sex: Male
  Weight: 11 kg

DRUGS (4)
  1. SYNAGIS [Suspect]
     Active Substance: PALIVIZUMAB
     Indication: PREMATURE BABY
     Route: 030
     Dates: start: 20201007
  2. GAMMAGARD 10% LIQ 1 GRAM VL [Concomitant]
  3. EPINEPHRINE HCL [Concomitant]
     Active Substance: EPINEPHRINE
  4. SYNAGIS [Suspect]
     Active Substance: PALIVIZUMAB
     Indication: LOW BIRTH WEIGHT BABY

REACTIONS (2)
  - Off label use [Unknown]
  - Weight decreased [Unknown]

NARRATIVE: CASE EVENT DATE: 20200710
